FAERS Safety Report 5683318-4 (Version None)
Quarter: 2008Q1

REPORT INFORMATION
  Report Type: 
  Country: None (occurrence: None)
  Receive Date: 20080327
  Receipt Date: 20080315
  Transmission Date: 20080703
  Serious: Yes (Other)
  Sender: FDA-Public Use
  Company Number: US-PFIZER INC-2008006078

PATIENT
  Sex: Female
  Weight: 61.7 kg

DRUGS (5)
  1. LYRICA [Suspect]
     Indication: PAIN
  2. FLOVENT [Concomitant]
  3. PROAIR HFA [Concomitant]
  4. SPIRIVA [Concomitant]
  5. PREDNISONE TAB [Concomitant]

REACTIONS (2)
  - OBSTRUCTIVE AIRWAYS DISORDER [None]
  - SWOLLEN TONGUE [None]
